FAERS Safety Report 16009608 (Version 2)
Quarter: 2019Q2

REPORT INFORMATION
  Report Type: Report from Study
  Country: US (occurrence: US)
  Receive Date: 20190225
  Receipt Date: 20190508
  Transmission Date: 20190711
  Serious: Yes (Other)
  Sender: FDA-Public Use
  Company Number: US-ROCHE-2267129

PATIENT
  Sex: Male
  Weight: 157.99 kg

DRUGS (1)
  1. OCREVUS [Suspect]
     Active Substance: OCRELIZUMAB
     Indication: RELAPSING MULTIPLE SCLEROSIS
     Dosage: DATE OF RECENT INFUSION 08/MAR/2019
     Route: 065
     Dates: start: 20180222

REACTIONS (1)
  - Multiple sclerosis relapse [Unknown]
